FAERS Safety Report 10731995 (Version 12)
Quarter: 2015Q2

REPORT INFORMATION
  Report Type: Report from Study
  Country: CA (occurrence: CA)
  Receive Date: 20150123
  Receipt Date: 20150613
  Transmission Date: 20150821
  Serious: Yes (Life-Threatening, Hospitalization, Other)
  Sender: FDA-Public Use
  Company Number: CA-ROCHE-1524310

PATIENT
  Age: 44 Year
  Sex: Male
  Weight: 63.7 kg

DRUGS (12)
  1. XELODA [Suspect]
     Active Substance: CAPECITABINE
     Route: 065
     Dates: start: 201203
  2. CISPLATIN. [Suspect]
     Active Substance: CISPLATIN
     Indication: GASTROOESOPHAGEAL CANCER
     Route: 065
     Dates: start: 20130327, end: 201411
  3. GABAPENTIN. [Concomitant]
     Active Substance: GABAPENTIN
     Indication: ABDOMINAL PAIN
     Route: 065
     Dates: end: 20150309
  4. RAN-ONDANSETRON [Concomitant]
     Indication: NAUSEA
     Dosage: AS REQUIRED
     Route: 065
  5. PANTOPRAZOLE SODIUM. [Concomitant]
     Active Substance: PANTOPRAZOLE SODIUM
  6. HERCEPTIN [Suspect]
     Active Substance: TRASTUZUMAB
     Indication: GASTROOESOPHAGEAL CANCER
     Route: 042
     Dates: start: 20130327, end: 201411
  7. PERJETA [Suspect]
     Active Substance: PERTUZUMAB
     Route: 042
     Dates: start: 20150324
  8. APO CANDESARTAN [Concomitant]
  9. HERCEPTIN [Suspect]
     Active Substance: TRASTUZUMAB
     Route: 042
     Dates: start: 20140414
  10. XELODA [Suspect]
     Active Substance: CAPECITABINE
     Indication: GASTROOESOPHAGEAL CANCER
     Route: 048
     Dates: start: 20130327, end: 201411
  11. HERCEPTIN [Suspect]
     Active Substance: TRASTUZUMAB
     Route: 042
     Dates: start: 201411, end: 20150505
  12. PERJETA [Suspect]
     Active Substance: PERTUZUMAB
     Indication: GASTROOESOPHAGEAL CANCER
     Route: 042
     Dates: start: 20150303, end: 20150505

REACTIONS (23)
  - Decreased appetite [Not Recovered/Not Resolved]
  - Pain [Unknown]
  - Constipation [Unknown]
  - Blood creatinine increased [Unknown]
  - Asthenia [Not Recovered/Not Resolved]
  - Chest pain [Unknown]
  - Brain neoplasm [Unknown]
  - Asthenia [Unknown]
  - Off label use [Unknown]
  - Dehydration [Not Recovered/Not Resolved]
  - Malignant neoplasm progression [Unknown]
  - Weight decreased [Not Recovered/Not Resolved]
  - Nausea [Not Recovered/Not Resolved]
  - Eating disorder [Not Recovered/Not Resolved]
  - Tooth disorder [Unknown]
  - Palpitations [Unknown]
  - Dysphagia [Unknown]
  - Dyspnoea [Unknown]
  - Fatigue [Unknown]
  - Intestinal perforation [Unknown]
  - Vomiting [Not Recovered/Not Resolved]
  - Diarrhoea [Not Recovered/Not Resolved]
  - Drug intolerance [Unknown]

NARRATIVE: CASE EVENT DATE: 201203
